FAERS Safety Report 7130235-9 (Version None)
Quarter: 2010Q4

REPORT INFORMATION
  Report Type: 
  Country: None (occurrence: None)
  Receive Date: 20101201
  Receipt Date: 20101116
  Transmission Date: 20110411
  Serious: No
  Sender: FDA-Public Use
  Company Number: PHHY2009CA51142

PATIENT
  Sex: Female

DRUGS (3)
  1. ACLASTA [Suspect]
     Indication: OSTEOPOROSIS
     Dosage: 5 MG
     Route: 042
     Dates: start: 20091120
  2. ACLASTA [Suspect]
     Dosage: 5 MG
     Route: 042
     Dates: start: 20080820
  3. ACLASTA [Suspect]
     Dosage: UNK
     Dates: start: 20101115

REACTIONS (11)
  - ASTHENIA [None]
  - CHILLS [None]
  - FEELING ABNORMAL [None]
  - FEELING COLD [None]
  - HEADACHE [None]
  - NAUSEA [None]
  - NECK PAIN [None]
  - PERIARTHRITIS [None]
  - PYREXIA [None]
  - RHINORRHOEA [None]
  - VOMITING [None]
